FAERS Safety Report 9607845 (Version 1)
Quarter: 2013Q4

REPORT INFORMATION
  Report Type: Spontaneous
  Country: IE (occurrence: None)
  Receive Date: 20131004
  Receipt Date: 20131004
  Transmission Date: 20140711
  Serious: Yes (Other)
  Sender: FDA-Public Use
  Company Number: 2013P1019729

PATIENT
  Age: 65 Year
  Sex: Male

DRUGS (3)
  1. TRANEXAMIC ACID [Suspect]
     Indication: KNEE ARTHROPLASTY
     Route: 042
  2. TRANEXAMIC ACID [Suspect]
     Indication: THROMBOSIS PROPHYLAXIS
     Route: 042
  3. TINZAPARIN [Concomitant]

REACTIONS (2)
  - Pulmonary embolism [None]
  - Cerebellar infarction [None]
